FAERS Safety Report 24590570 (Version 1)
Quarter: 2024Q4

REPORT INFORMATION
  Report Type: Spontaneous
  Country: DE (occurrence: DE)
  Receive Date: 20241107
  Receipt Date: 20241107
  Transmission Date: 20250115
  Serious: Yes (Other)
  Sender: CELLTRION
  Company Number: DE-ABBVIE-5745664

PATIENT

DRUGS (8)
  1. ADALIMUMAB [Suspect]
     Active Substance: ADALIMUMAB
     Indication: Product used for unknown indication
     Route: 065
  2. HUMIRA [Suspect]
     Active Substance: ADALIMUMAB
     Indication: Rheumatoid arthritis
     Dosage: SOLUTION FOR INJECTION IN PRE-FILLED PEN, EVERY 14 DAYS
     Route: 058
     Dates: start: 20161019, end: 20240124
  3. HUMIRA [Suspect]
     Active Substance: ADALIMUMAB
     Indication: Uveitis
  4. FOLIC ACID [Concomitant]
     Active Substance: FOLIC ACID
     Indication: Product used for unknown indication
     Dosage: EVERY 7 DAYS
     Route: 048
     Dates: start: 2015
  5. METOPROLOL TARTRATE [Concomitant]
     Active Substance: METOPROLOL TARTRATE
     Indication: Myocardial infarction
     Dosage: 47500 MICROGRAM, EVERY 1 DAY
     Route: 048
     Dates: start: 2012
  6. ASPIRIN [Concomitant]
     Active Substance: ASPIRIN
     Indication: Anticoagulant therapy
     Dosage: EVERY 1 DAY
     Route: 048
     Dates: start: 2012
  7. METEX [Concomitant]
     Indication: Rheumatoid arthritis
     Dosage: 10 MG, EVERY 7 DAYS
     Route: 058
     Dates: start: 2019
  8. MODIP [FELODIPINE] [Concomitant]
     Indication: Hypertension
     Dosage: 16 MG, EVERY 1 DAY
     Route: 048
     Dates: start: 2012

REACTIONS (5)
  - Rheumatoid arthritis [Recovered/Resolved]
  - Oropharyngeal pain [Recovered/Resolved]
  - Chills [Recovered/Resolved]
  - Fatigue [Recovered/Resolved]
  - Pain in extremity [Recovered/Resolved]

NARRATIVE: CASE EVENT DATE: 20240322
